FAERS Safety Report 24285950 (Version 1)
Quarter: 2024Q3

REPORT INFORMATION
  Report Type: Spontaneous
  Country: CA (occurrence: CA)
  Receive Date: 20240905
  Receipt Date: 20240905
  Transmission Date: 20241017
  Serious: No
  Sender: PFIZER
  Company Number: CA-PFIZER INC-202300306614

PATIENT
  Age: 11 Year
  Sex: Female

DRUGS (4)
  1. SOMATROPIN [Suspect]
     Active Substance: SOMATROPIN
     Indication: Turner^s syndrome
     Dosage: 800 UG, DAILY, 7 TIMES A WEEK, GOQUICK 12MG PEN
     Route: 058
     Dates: start: 20231019
  2. SOMATROPIN [Suspect]
     Active Substance: SOMATROPIN
     Dosage: 900 UG/M2, UNKNOWN FREQUENCY
     Route: 058
  3. GENOTROPIN [Suspect]
     Active Substance: SOMATROPIN
     Indication: Turner^s syndrome
     Dosage: A DOSE OF 1.1MG 7 DAYS
  4. GENOTROPIN [Suspect]
     Active Substance: SOMATROPIN
     Dosage: 1 MG, MINIQUICK - UNKNOWN FREQUENCY
     Route: 058

REACTIONS (6)
  - Injection site pain [Not Recovered/Not Resolved]
  - Injection site discomfort [Not Recovered/Not Resolved]
  - Injection site bruising [Not Recovered/Not Resolved]
  - Product prescribing error [Unknown]
  - Injection site mass [Unknown]
  - Product use complaint [Unknown]

NARRATIVE: CASE EVENT DATE: 20231001
